FAERS Safety Report 12568595 (Version 1)
Quarter: 2016Q3

REPORT INFORMATION
  Report Type: Spontaneous
  Country: US (occurrence: US)
  Receive Date: 20160719
  Receipt Date: 20160719
  Transmission Date: 20161109
  Serious: Yes (Other)
  Sender: FDA-Public Use
  Company Number: US-BAYER-2016-132501

PATIENT
  Age: 58 Year
  Sex: Male

DRUGS (2)
  1. CIPRO [Suspect]
     Active Substance: CIPROFLOXACIN HYDROCHLORIDE
     Indication: BIOPSY
     Dosage: UNK
  2. PROGRAF [Suspect]
     Active Substance: TACROLIMUS\TACROLIMUS ANHYDROUS
     Indication: TRANSPLANT REJECTION
     Dosage: 2 MG, TWICE DAILY (2 IN MORNING AND 2 IN EVENING)
     Route: 048

REACTIONS (5)
  - Pain [None]
  - Pyrexia [None]
  - Product use issue [None]
  - Immunosuppressant drug level decreased [None]
  - Neuropathy peripheral [None]
